FAERS Safety Report 18428377 (Version 2)
Quarter: 2020Q4

REPORT INFORMATION
  Report Type: Spontaneous
  Country: US (occurrence: US)
  Receive Date: 20201026
  Receipt Date: 20201218
  Transmission Date: 20210114
  Serious: No
  Sender: FDA-Public Use
  Company Number: US-BAYER-2020-217821

PATIENT
  Age: 78 Year
  Sex: Male

DRUGS (1)
  1. GADAVIST [Suspect]
     Active Substance: GADOBUTROL
     Indication: MAGNETIC RESONANCE IMAGING BRAIN
     Dosage: 7.5 ML, ONCE
     Route: 042
     Dates: start: 20201006, end: 20201006

REACTIONS (1)
  - Malaise [None]

NARRATIVE: CASE EVENT DATE: 20201006
